FAERS Safety Report 7649230-6 (Version None)
Quarter: 2011Q3

REPORT INFORMATION
  Report Type: 
  Country: None (occurrence: None)
  Receive Date: 20110726
  Receipt Date: 20110711
  Transmission Date: 20111222
  Serious: Yes (Other)
  Sender: FDA-Public Use
  Company Number: 2007US002683

PATIENT
  Age: 83 Year
  Sex: Male

DRUGS (11)
  1. PLAVIX [Concomitant]
  2. AVODART [Concomitant]
  3. VESICARE [Suspect]
     Indication: HYPERTONIC BLADDER
     Dosage: 5 MG, UID/QD, ORAL ; 10 MG, UID/QD, ORAL ; 15 MG, UID/QD, ORAL ; 5 MG, BID
     Route: 048
     Dates: start: 20071101, end: 20071115
  4. VESICARE [Suspect]
     Indication: HYPERTONIC BLADDER
     Dosage: 5 MG, UID/QD, ORAL ; 10 MG, UID/QD, ORAL ; 15 MG, UID/QD, ORAL ; 5 MG, BID
     Route: 048
     Dates: start: 20081201
  5. VESICARE [Suspect]
     Indication: HYPERTONIC BLADDER
     Dosage: 5 MG, UID/QD, ORAL ; 10 MG, UID/QD, ORAL ; 15 MG, UID/QD, ORAL ; 5 MG, BID
     Route: 048
     Dates: start: 20070801, end: 20071101
  6. VESICARE [Suspect]
     Indication: HYPERTONIC BLADDER
     Dosage: 5 MG, UID/QD, ORAL ; 10 MG, UID/QD, ORAL ; 15 MG, UID/QD, ORAL ; 5 MG, BID
     Route: 048
     Dates: start: 20071115
  7. LUTEIN (XANTOFYL) [Concomitant]
  8. FISH OIL (FISH OIL) [Concomitant]
  9. VITAMIN B6 [Concomitant]
  10. 5-FLU (FLUOROURACIL SODIUM) [Concomitant]
  11. MULTIVITAMIN [Concomitant]

REACTIONS (7)
  - GLAUCOMA [None]
  - CATARACT [None]
  - OVERDOSE [None]
  - WRONG TECHNIQUE IN DRUG USAGE PROCESS [None]
  - DRY EYE [None]
  - DRUG INEFFECTIVE [None]
  - REDUCED BLADDER CAPACITY [None]
